FAERS Safety Report 6218963-0 (Version None)
Quarter: 2009Q2

REPORT INFORMATION
  Report Type: 
  Country: None (occurrence: None)
  Receive Date: 20090608
  Receipt Date: 20090528
  Transmission Date: 20091009
  Serious: Yes (Other)
  Sender: FDA-Public Use
  Company Number: PHEH2009US05355

PATIENT
  Sex: Female

DRUGS (6)
  1. DIOVAN [Suspect]
     Dosage: 160 MG/DAY
  2. DIOVAN [Suspect]
     Dosage: UNK
  3. LISINOPRIL [Suspect]
  4. ATENOLOL [Concomitant]
     Dosage: 10 MG/DAY
  5. CHLORTHALIDONE [Concomitant]
     Dosage: 25 MG/DAY
  6. POTASSIUM CHLORIDE [Concomitant]

REACTIONS (2)
  - DEPRESSION [None]
  - DIZZINESS [None]
